FAERS Safety Report 6591268-4 (Version None)
Quarter: 2010Q1

REPORT INFORMATION
  Report Type: 
  Country: None (occurrence: None)
  Receive Date: 20100219
  Receipt Date: 20100215
  Transmission Date: 20100710
  Serious: Yes (Other)
  Sender: FDA-Public Use
  Company Number: TR-TEVA-224404ISR

PATIENT
  Age: 35 Year
  Sex: Female

DRUGS (5)
  1. ETOPOSIDE [Suspect]
     Indication: CHORIOCARCINOMA
  2. METHOTREXATE [Suspect]
     Indication: CHORIOCARCINOMA
  3. VINCRISTINE [Suspect]
     Indication: CHORIOCARCINOMA
  4. DACTINOMYCIN [Suspect]
     Indication: CHORIOCARCINOMA
  5. CYCLOPHOSPHAMIDE [Suspect]
     Indication: CHORIOCARCINOMA

REACTIONS (1)
  - HEPATITIS B [None]
